FAERS Safety Report 20470892 (Version 3)
Quarter: 2022Q1

REPORT INFORMATION
  Report Type: Report from Study
  Country: CA (occurrence: CA)
  Receive Date: 20220214
  Receipt Date: 20220329
  Transmission Date: 20220423
  Serious: Yes (Other)
  Sender: FDA-Public Use
  Company Number: CA-OTSUKA-2021_033197

PATIENT
  Age: 80 Year
  Sex: Female

DRUGS (4)
  1. CEDAZURIDINE\DECITABINE [Suspect]
     Active Substance: CEDAZURIDINE\DECITABINE
     Indication: Myelodysplastic syndrome
     Dosage: (35 MG OF DECITABINE AND 100 MG OF CEDAZURIDINE) 1 TABLET FROM DAY 1 TO 3 OF 28 DAY CYCLE), QD
     Route: 048
     Dates: start: 20210323
  2. CEDAZURIDINE\DECITABINE [Suspect]
     Active Substance: CEDAZURIDINE\DECITABINE
     Dosage: (35 MG OF DECITABINE AND 100 MG OF CEDAZURIDINE) DECREASED TO 1 TABLET ONCE DAILY
     Route: 048
  3. CEDAZURIDINE\DECITABINE [Suspect]
     Active Substance: CEDAZURIDINE\DECITABINE
     Dosage: (35 MG OF DECITABINE AND 100 MG OF CEDAZURIDINE) 5 PILLS PER CYCLE
     Route: 065
  4. CEDAZURIDINE\DECITABINE [Suspect]
     Active Substance: CEDAZURIDINE\DECITABINE
     Dosage: (35 MG OF DECITABINE AND 100 MG OF CEDAZURIDINE) 3 PILLS PER CYCLE
     Route: 065

REACTIONS (11)
  - Blood product transfusion dependent [Unknown]
  - Neutropenia [Unknown]
  - General physical health deterioration [Unknown]
  - Eastern Cooperative Oncology Group performance status worsened [Unknown]
  - Arthritis [Unknown]
  - White blood cell count abnormal [Unknown]
  - Hypotension [Unknown]
  - Asthenia [Not Recovered/Not Resolved]
  - Dizziness [Unknown]
  - Nausea [Unknown]
  - Product use issue [Unknown]

NARRATIVE: CASE EVENT DATE: 20211201
